FAERS Safety Report 15696194 (Version 5)
Quarter: 2019Q4

REPORT INFORMATION
  Report Type: Report from Study
  Country: US (occurrence: US)
  Receive Date: 20181206
  Receipt Date: 20191224
  Transmission Date: 20200122
  Serious: Yes (Death, Hospitalization, Congenital Anomaly)
  Sender: FDA-Public Use
  Company Number: US-ACTELION-A-US2016-145543

PATIENT
  Age: 81 Year
  Sex: Female
  Weight: 44.9 kg

DRUGS (11)
  1. OPSUMIT [Suspect]
     Active Substance: MACITENTAN
     Indication: PULMONARY HYPERTENSION
     Dosage: 10 MG, QD
     Route: 048
     Dates: start: 20161102
  2. ORENITRAM [Suspect]
     Active Substance: TREPROSTINIL
     Dosage: 1.25 MG, TID
     Route: 048
  3. VITAMIN D3 [Concomitant]
     Active Substance: CHOLECALCIFEROL
     Dosage: 1000 I/U, UNK
  4. ORENITRAM [Suspect]
     Active Substance: TREPROSTINIL
     Indication: PRODUCT USED FOR UNKNOWN INDICATION
     Dosage: 1.5 MG, TID
     Route: 048
  5. ORENITRAM [Suspect]
     Active Substance: TREPROSTINIL
     Dosage: 1.75 MG, TID
     Route: 048
  6. SILDENAFIL. [Concomitant]
     Active Substance: SILDENAFIL
  7. ADEMPAS [Concomitant]
     Active Substance: RIOCIGUAT
     Dosage: 1 MG, TID
     Dates: start: 20181030, end: 20181122
  8. POTASSIUM CHLORIDE. [Concomitant]
     Active Substance: POTASSIUM CHLORIDE
     Dosage: 10 MEQ, UNK
  9. OPSUMIT [Suspect]
     Active Substance: MACITENTAN
     Dosage: 10 MG, QD
     Route: 048
     Dates: end: 20190807
  10. FUROSEMIDE. [Concomitant]
     Active Substance: FUROSEMIDE
     Dosage: 20 MG, QD
  11. ORENITRAM [Suspect]
     Active Substance: TREPROSTINIL
     Dosage: 2.75 MG, TID
     Route: 048
     Dates: start: 20170610

REACTIONS (31)
  - Oxygen saturation decreased [Unknown]
  - Lung disorder [Recovered/Resolved]
  - Face oedema [Unknown]
  - Weight decreased [Unknown]
  - Dizziness [Unknown]
  - Sinusitis [Unknown]
  - Hypokalaemia [Unknown]
  - Influenza like illness [Unknown]
  - Respiratory failure [Fatal]
  - Unevaluable event [Unknown]
  - Nasal discharge discolouration [Unknown]
  - Nausea [Unknown]
  - Cellulitis [Unknown]
  - Fatigue [Unknown]
  - Headache [Unknown]
  - Dyspnoea [Unknown]
  - Discomfort [Unknown]
  - Hunger [Unknown]
  - Condition aggravated [Fatal]
  - Oxygen consumption increased [Unknown]
  - Nervousness [Unknown]
  - Animal bite [Unknown]
  - Diarrhoea [Unknown]
  - Dyspnoea exertional [Unknown]
  - Acute kidney injury [Recovered/Resolved with Sequelae]
  - Troponin increased [Recovered/Resolved with Sequelae]
  - Cardiac failure congestive [Fatal]
  - Pulmonary oedema [Recovered/Resolved with Sequelae]
  - Brain natriuretic peptide increased [Recovered/Resolved with Sequelae]
  - Pulmonary hypertension [Unknown]
  - Peripheral swelling [Unknown]

NARRATIVE: CASE EVENT DATE: 20170808
